FAERS Safety Report 19236446 (Version 1)
Quarter: 2021Q2

REPORT INFORMATION
  Report Type: Spontaneous
  Country: US (occurrence: US)
  Receive Date: 20210510
  Receipt Date: 20210510
  Transmission Date: 20210717
  Serious: Yes (Hospitalization)
  Sender: FDA-Public Use
  Company Number: US-ALLERGAN-2115357US

PATIENT
  Sex: Female

DRUGS (3)
  1. REFRESH TEARS [Suspect]
     Active Substance: CARBOXYMETHYLCELLULOSE SODIUM
     Indication: EYE INFECTION
  2. REFRESH TEARS [Suspect]
     Active Substance: CARBOXYMETHYLCELLULOSE SODIUM
     Indication: DRY EYE
     Dosage: 8 TIMES PER DAY
  3. LUBRICANT EYE DROPS PLUS PF [Concomitant]
     Dosage: UNK, BID

REACTIONS (8)
  - Expired product administered [Unknown]
  - Visual impairment [Not Recovered/Not Resolved]
  - Vertigo [Not Recovered/Not Resolved]
  - Pneumonia [Not Recovered/Not Resolved]
  - Hypoacusis [Not Recovered/Not Resolved]
  - COVID-19 [Recovered/Resolved]
  - Eye pain [Unknown]
  - Incorrect dose administered [Unknown]

NARRATIVE: CASE EVENT DATE: 202102
